FAERS Safety Report 10891347 (Version 1)
Quarter: 2015Q1

REPORT INFORMATION
  Report Type: Report from Study
  Country: US (occurrence: US)
  Receive Date: 20150306
  Receipt Date: 20150306
  Transmission Date: 20150721
  Serious: Yes (Other)
  Sender: FDA-Public Use
  Company Number: US-BAYER-2014-089782

PATIENT
  Age: 64 Year
  Sex: Female
  Weight: 76.69 kg

DRUGS (23)
  1. SUCRALFATE. [Concomitant]
     Active Substance: SUCRALFATE
     Dosage: 1 G
  2. VITAMIN D [Concomitant]
     Active Substance: CHOLECALCIFEROL
     Dosage: 1000 UN
  3. XARELTO [Concomitant]
     Active Substance: RIVAROXABAN
     Dosage: 10 MG
  4. EXFORGE [Concomitant]
     Active Substance: AMLODIPINE BESYLATE\VALSARTAN
     Dosage: 5 MG
  5. NEXAVAR [Suspect]
     Active Substance: SORAFENIB
     Indication: METASTASES TO SPINE
     Dosage: 2 X 200MG
     Route: 048
     Dates: start: 20140602
  6. GABAPENTIN. [Concomitant]
     Active Substance: GABAPENTIN
     Dosage: 300 MG
  7. CIPROFLOXACIN HCL [Concomitant]
     Active Substance: CIPROFLOXACIN HYDROCHLORIDE
     Dosage: 500 MG
  8. ONDANSETRON HYDROCHLORIDE. [Concomitant]
     Active Substance: ONDANSETRON HYDROCHLORIDE
     Dosage: 8 MG
  9. CALCIUM CARBONATE. [Concomitant]
     Active Substance: CALCIUM CARBONATE
  10. IRON [Concomitant]
     Active Substance: IRON
     Dosage: 18 MG
  11. SENOKOT [Concomitant]
     Active Substance: SENNOSIDES
     Dosage: 8.6 MG
  12. NEXAVAR [Suspect]
     Active Substance: SORAFENIB
     Indication: RENAL CELL CARCINOMA STAGE IV
     Dosage: 200 MG, BID
     Dates: start: 20140715
  13. SIMVASTATIN. [Concomitant]
     Active Substance: SIMVASTATIN
     Dosage: 10 MG
  14. SPIRONOLACTONE AND HYDROCHLOROTHIAZIDE [Concomitant]
     Active Substance: HYDROCHLOROTHIAZIDE\SPIRONOLACTONE
     Dosage: 25 MG-2
  15. SYNTHROID [Concomitant]
     Active Substance: LEVOTHYROXINE SODIUM
     Dosage: 100 MCG
  16. AVONEX [Concomitant]
     Active Substance: INTERFERON BETA-1A
     Dosage: 30 MCG
  17. AMOXICILLIN TRIHYDRATE W/CLAVULANTE POTASSIUM [Concomitant]
     Active Substance: AMOXICILLIN\CLAVULANATE POTASSIUM
  18. NEXAVAR [Suspect]
     Active Substance: SORAFENIB
     Indication: RENAL CELL CARCINOMA STAGE IV
     Dosage: 200 MG, BID
     Dates: start: 20130912
  19. FENTANYL. [Concomitant]
     Active Substance: FENTANYL
     Dosage: 100 MCG
  20. OXYCODONE HYDROCHLORIDE. [Concomitant]
     Active Substance: OXYCODONE HYDROCHLORIDE
     Dosage: 15 MG
  21. VITAMIN B12 [Concomitant]
     Active Substance: CYANOCOBALAMIN
     Dosage: 100 MCG
  22. NEXAVAR [Suspect]
     Active Substance: SORAFENIB
     Indication: RENAL CELL CARCINOMA STAGE IV
     Dosage: 400 MG, BID
     Route: 048
     Dates: start: 20140604, end: 20140701
  23. NEXIUM [Concomitant]
     Active Substance: ESOMEPRAZOLE MAGNESIUM
     Dosage: 40 MG

REACTIONS (10)
  - Nausea [Recovering/Resolving]
  - Rash [Recovered/Resolved]
  - Constipation [Recovering/Resolving]
  - Thermal burn [Unknown]
  - Drug dose omission [None]
  - Rash [Recovering/Resolving]
  - Diarrhoea [Recovering/Resolving]
  - Alopecia [Recovering/Resolving]
  - Skin burning sensation [Recovering/Resolving]
  - Fatigue [None]
